FAERS Safety Report 6834307-5 (Version None)
Quarter: 2010Q3

REPORT INFORMATION
  Report Type: 
  Country: None (occurrence: None)
  Receive Date: 20100712
  Receipt Date: 20070424
  Transmission Date: 20110219
  Serious: No
  Sender: FDA-Public Use
  Company Number: US-PFIZER INC-2007034299

PATIENT
  Sex: Female
  Weight: 75 kg

DRUGS (5)
  1. CHANTIX [Suspect]
     Indication: SMOKING CESSATION THERAPY
     Route: 048
     Dates: start: 20070101
  2. ALL OTHER THERAPEUTIC PRODUCTS [Suspect]
     Indication: HAIR COLOUR CHANGES
     Dates: start: 20070101
  3. LITHIUM [Concomitant]
     Route: 048
  4. ELAVIL [Concomitant]
     Route: 048
  5. KLONOPIN [Concomitant]
     Route: 048

REACTIONS (2)
  - ALOPECIA [None]
  - STRESS [None]
